FAERS Safety Report 11606914 (Version 3)
Quarter: 2017Q3

REPORT INFORMATION
  Report Type: Report from Study
  Country: US (occurrence: US)
  Receive Date: 20151007
  Receipt Date: 20170728
  Transmission Date: 20171127
  Serious: No
  Sender: FDA-Public Use
  Company Number: GXBR2015US001991

PATIENT
  Age: 44 Year
  Sex: Female

DRUGS (1)
  1. GLATOPA [Suspect]
     Active Substance: GLATIRAMER ACETATE
     Indication: PRODUCT USED FOR UNKNOWN INDICATION
     Dosage: 20 MG, QD
     Route: 065
     Dates: start: 20150809

REACTIONS (9)
  - Feeling abnormal [Recovered/Resolved]
  - Injection site reaction [Unknown]
  - Swelling face [Unknown]
  - Peripheral swelling [Unknown]
  - Urticaria [Unknown]
  - Paraesthesia [Recovered/Resolved]
  - Reaction to preservatives [Unknown]
  - Anal incontinence [Recovered/Resolved]
  - Halo vision [Recovered/Resolved]

NARRATIVE: CASE EVENT DATE: 20150811
